FAERS Safety Report 20538992 (Version 1)
Quarter: 2022Q1

REPORT INFORMATION
  Report Type: Report from Study
  Country: FR (occurrence: FR)
  Receive Date: 20220302
  Receipt Date: 20220302
  Transmission Date: 20220423
  Serious: Yes (Hospitalization)
  Sender: FDA-Public Use
  Company Number: FR-JNJFOC-20210811577

PATIENT
  Age: 81 Year
  Sex: Female

DRUGS (6)
  1. DARATUMUMAB [Suspect]
     Active Substance: DARATUMUMAB
     Indication: Plasma cell myeloma
     Dosage: THE DATE OF LAST DOSE WAS TAKEN ON 29-JUL-2021.
     Route: 058
     Dates: start: 20210721, end: 20210729
  2. DARATUMUMAB [Suspect]
     Active Substance: DARATUMUMAB
     Dosage: RESUMED ON 31-AUG-2021
     Route: 058
     Dates: start: 20210831
  3. LENALIDOMIDE [Suspect]
     Active Substance: LENALIDOMIDE
     Indication: Plasma cell myeloma
     Route: 048
     Dates: start: 20210722, end: 20210804
  4. LENALIDOMIDE [Suspect]
     Active Substance: LENALIDOMIDE
     Dosage: RESUMED ON 31-AUG-2021
     Route: 048
     Dates: start: 20210831
  5. DEXAMETHASONE [Suspect]
     Active Substance: DEXAMETHASONE
     Indication: Plasma cell myeloma
     Route: 048
     Dates: start: 20210721, end: 20210729
  6. DEXAMETHASONE [Suspect]
     Active Substance: DEXAMETHASONE
     Dosage: RESUMED ON 31-AUG-2021
     Route: 048
     Dates: start: 20210831

REACTIONS (2)
  - Malnutrition [Recovered/Resolved]
  - Dehydration [Recovered/Resolved]

NARRATIVE: CASE EVENT DATE: 20210805
